FAERS Safety Report 19548497 (Version 1)
Quarter: 2021Q3

REPORT INFORMATION
  Report Type: Spontaneous
  Country: IT (occurrence: IT)
  Receive Date: 20210714
  Receipt Date: 20210714
  Transmission Date: 20211014
  Serious: Yes (Hospitalization, Other)
  Sender: FDA-Public Use
  Company Number: IT-ALVOGEN-2021-ALVOGEN-117192

PATIENT
  Age: 44 Year
  Sex: Female

DRUGS (1)
  1. FLECAINIDE [Suspect]
     Active Substance: FLECAINIDE
     Indication: SUICIDE ATTEMPT
     Dosage: 20 TABLETS OF FLECAINIDE 150 MG

REACTIONS (10)
  - Ventricular hypokinesia [Recovered/Resolved]
  - Stress cardiomyopathy [Recovering/Resolving]
  - Jaw fracture [Unknown]
  - Cardiogenic shock [Unknown]
  - Syncope [Unknown]
  - Ventricular fibrillation [Recovering/Resolving]
  - Toxicity to various agents [Unknown]
  - Ventricular tachycardia [Recovering/Resolving]
  - Metabolic acidosis [Unknown]
  - Cardiac pacemaker insertion [Unknown]
